FAERS Safety Report 13624899 (Version 2)
Quarter: 2017Q2

REPORT INFORMATION
  Report Type: Spontaneous
  Country: JP (occurrence: JP)
  Receive Date: 20170608
  Receipt Date: 20170621
  Transmission Date: 20170830
  Serious: Yes (Hospitalization)
  Sender: FDA-Public Use
  Company Number: JP-CONCORDIA PHARMACEUTICALS INC.-GSH201706-003363

PATIENT
  Age: 64 Year
  Sex: Male

DRUGS (19)
  1. AMIYU [Concomitant]
     Active Substance: AMINO ACIDS
  2. CRAVIT [Concomitant]
     Active Substance: LEVOFLOXACIN
  3. MAXACALCITOL [Concomitant]
     Active Substance: MAXACALCITOL
  4. LYRICA [Concomitant]
     Active Substance: PREGABALIN
  5. DEPAKENE [Concomitant]
     Active Substance: VALPROIC ACID
  6. MINIHEP [Concomitant]
  7. KAYEXALATE [Suspect]
     Active Substance: SODIUM POLYSTYRENE SULFONATE
     Route: 048
  8. FUTHAN [Suspect]
     Active Substance: NAFAMOSTAT MESYLATE
     Indication: THROMBOSIS PROPHYLAXIS
     Route: 065
     Dates: start: 20161226, end: 20161226
  9. AMLODIPINE BESILATE [Concomitant]
     Active Substance: AMLODIPINE BESYLATE
  10. MICARDIS [Concomitant]
     Active Substance: TELMISARTAN
  11. PARIET [Concomitant]
     Active Substance: RABEPRAZOLE SODIUM
  12. L-CARTIN [Concomitant]
     Active Substance: LEVOCARNITINE HYDROCHLORIDE
  13. BISONO [Concomitant]
     Active Substance: BISOPROLOL
  14. LOPEMIN [Concomitant]
     Active Substance: LOPERAMIDE HYDROCHLORIDE
  15. MYSLEE [Concomitant]
     Active Substance: ZOLPIDEM TARTRATE
  16. CALTAN [Concomitant]
     Active Substance: CALCIUM CARBONATE
  17. ARTIST [Concomitant]
     Active Substance: CARVEDILOL
  18. MIYA-BM [Concomitant]
     Active Substance: CLOSTRIDIUM BUTYRICUM SPORES STRAIN M-55
  19. TRANSAMIN [Concomitant]
     Active Substance: TRANEXAMIC ACID

REACTIONS (1)
  - Anaphylactic reaction [Recovered/Resolved]

NARRATIVE: CASE EVENT DATE: 20161226
